FAERS Safety Report 7203470-9 (Version None)
Quarter: 2010Q4

REPORT INFORMATION
  Report Type: 
  Country: None (occurrence: None)
  Receive Date: 20101230
  Receipt Date: 20101222
  Transmission Date: 20110411
  Serious: Yes (Hospitalization, Other)
  Sender: FDA-Public Use
  Company Number: US-JNJFOC-20100703748

PATIENT
  Sex: Male

DRUGS (2)
  1. LEVAQUIN [Suspect]
     Indication: GASTROINTESTINAL INFECTION
     Route: 048
  2. LEVAQUIN [Suspect]
     Route: 048

REACTIONS (2)
  - POST-TRAUMATIC STRESS DISORDER [None]
  - TENDON RUPTURE [None]
